FAERS Safety Report 4726927-9 (Version None)
Quarter: 2005Q3

REPORT INFORMATION
  Report Type: 
  Country: None (occurrence: None)
  Receive Date: 20050726
  Receipt Date: 20050628
  Transmission Date: 20060218
  Serious: Yes (Other)
  Sender: FDA-Public Use
  Company Number: ENTC2005-0178

PATIENT
  Age: 63 Year
  Sex: Female

DRUGS (1)
  1. STALEVO 100 [Suspect]
     Indication: PARKINSON'S DISEASE
     Dosage: 1 TABLET (100/25/200 MG) TDS
     Dates: start: 20050414, end: 20050523

REACTIONS (3)
  - DRUG ERUPTION [None]
  - HYPERSENSITIVITY [None]
  - RASH ERYTHEMATOUS [None]
